FAERS Safety Report 13827539 (Version 1)
Quarter: 2017Q3

REPORT INFORMATION
  Report Type: Spontaneous
  Country: FR (occurrence: FR)
  Receive Date: 20170802
  Receipt Date: 20170802
  Transmission Date: 20171127
  Serious: Yes (Hospitalization)
  Sender: FDA-Public Use
  Company Number: FR-AMGEN-FRASP2017114610

PATIENT
  Age: 65 Year
  Sex: Male

DRUGS (4)
  1. FLUOROURACIL. [Suspect]
     Active Substance: FLUOROURACIL
     Indication: COLORECTAL CANCER
     Dosage: 130 MG, UNK
     Route: 040
     Dates: start: 20170612, end: 20170612
  2. VECTIBIX [Suspect]
     Active Substance: PANITUMUMAB
     Indication: COLORECTAL CANCER
     Dosage: 400 MG, UNK
     Route: 042
     Dates: start: 20170612, end: 20170612
  3. FLUOROURACIL. [Suspect]
     Active Substance: FLUOROURACIL
     Dosage: 1000 MG, UNK
     Route: 041
     Dates: start: 20170612, end: 20170612
  4. OXALIPLATIN KABI [Suspect]
     Active Substance: OXALIPLATIN
     Indication: COLORECTAL CANCER
     Dosage: 150 MG, UNK
     Route: 042
     Dates: start: 20170612, end: 20170612

REACTIONS (5)
  - Back pain [Recovered/Resolved]
  - Pyrexia [Recovered/Resolved]
  - Cough [Recovered/Resolved]
  - Tremor [Recovered/Resolved]
  - Chills [Recovered/Resolved]

NARRATIVE: CASE EVENT DATE: 20170612
